FAERS Safety Report 6610942-4 (Version None)
Quarter: 2010Q1

REPORT INFORMATION
  Report Type: 
  Country: None (occurrence: None)
  Receive Date: 20100222
  Receipt Date: 20100204
  Transmission Date: 20100710
  Serious: Yes (Hospitalization, Other)
  Sender: FDA-Public Use
  Company Number: 006548

PATIENT
  Sex: Female

DRUGS (4)
  1. KEPPRA [Suspect]
     Indication: EPILEPSY
     Dosage: 1 G ORAL,, 1.5 G ORAL, 2 G ORAL, 3 G ORAL, 2 G ORAL
     Route: 048
     Dates: start: 20090101
  2. NEURONTIN [Suspect]
     Indication: EPILEPSY
     Dosage: 2.8 G, 2.8 G DAILY, ORAL, 3 G, 3 G DAILY ORAL
     Route: 048
     Dates: start: 20090529
  3. URBANYL (URBANYL) (NOT SPECIFIED) [Suspect]
     Dosage: 15 MG ORAL
     Route: 048
  4. TEGRETOL [Concomitant]

REACTIONS (2)
  - HEMIPARESIS [None]
  - STATUS EPILEPTICUS [None]
